FAERS Safety Report 10231032 (Version 1)
Quarter: 2014Q2

REPORT INFORMATION
  Report Type: Report from Study
  Country: FR (occurrence: FR)
  Receive Date: 20140611
  Receipt Date: 20140611
  Transmission Date: 20141212
  Serious: Yes (Other)
  Sender: FDA-Public Use
  Company Number: FR-BRISTOL-MYERS SQUIBB COMPANY-20941126

PATIENT
  Age: 71 Year
  Sex: Female

DRUGS (3)
  1. ABATACEPT SUBQ INJECTION 125MG/ML [Suspect]
     Dosage: ORENCIA IV PREVIOUSLY
     Route: 058
  2. METOJECT [Concomitant]
     Route: 058
  3. CORTANCYL [Concomitant]
     Route: 048

REACTIONS (2)
  - Asthenia [Unknown]
  - Weight decreased [Unknown]
